FAERS Safety Report 6976712-2 (Version None)
Quarter: 2010Q3

REPORT INFORMATION
  Report Type: 
  Country: None (occurrence: None)
  Receive Date: 20100910
  Receipt Date: 20100830
  Transmission Date: 20110219
  Serious: Yes (Hospitalization)
  Sender: FDA-Public Use
  Company Number: KR-ELI_LILLY_AND_COMPANY-KR201008008797

PATIENT
  Sex: Female
  Weight: 57.3 kg

DRUGS (8)
  1. PEMETREXED [Suspect]
     Indication: NON-SMALL CELL LUNG CANCER
     Dosage: 500 MG/M2, UNKNOWN
     Route: 042
     Dates: start: 20100723
  2. CISPLATIN [Suspect]
     Indication: NON-SMALL CELL LUNG CANCER
     Dosage: 75 MG/M2, UNK
     Route: 042
     Dates: start: 20100723
  3. FOLIC ACID [Concomitant]
     Dosage: 1 MG, DAILY (1/D)
     Route: 048
     Dates: start: 20100719
  4. VITAMIN B-12 [Concomitant]
     Dosage: 1000 MG, UNK
     Route: 042
     Dates: start: 20100719, end: 20100719
  5. DEXAMETHASONE [Concomitant]
     Dosage: 8 MG, UNK
     Route: 048
     Dates: start: 20100724, end: 20100726
  6. GASMOTIN [Concomitant]
     Indication: DYSPEPSIA
     Dates: start: 20100717
  7. FAMOTIDINE [Concomitant]
     Indication: PROPHYLAXIS AGAINST GASTROINTESTINAL ULCER
     Dates: start: 20100713
  8. MEGESTROL [Concomitant]
     Dates: start: 20100812

REACTIONS (1)
  - HERPES ZOSTER [None]
